FAERS Safety Report 8084509-8 (Version None)
Quarter: 2012Q1

REPORT INFORMATION
  Report Type: 
  Country: None (occurrence: None)
  Receive Date: 20120128
  Receipt Date: 20110324
  Transmission Date: 20120608
  Serious: No
  Sender: FDA-Public Use
  Company Number: US-ABBOTT-11P-163-0714259-00

PATIENT
  Sex: Female
  Weight: 66.284 kg

DRUGS (4)
  1. HUMIRA [Suspect]
     Indication: PSORIATIC ARTHROPATHY
     Dates: start: 20110225
  2. HUMIRA [Suspect]
     Indication: PSORIASIS
  3. ORTHOMICRON [Concomitant]
     Indication: PRODUCT USED FOR UNKNOWN INDICATION
  4. PROZAC [Concomitant]
     Indication: PRODUCT USED FOR UNKNOWN INDICATION

REACTIONS (1)
  - STAPHYLOCOCCAL INFECTION [None]
